FAERS Safety Report 6414597-3 (Version None)
Quarter: 2009Q4

REPORT INFORMATION
  Report Type: 
  Country: None (occurrence: None)
  Receive Date: 20091021
  Receipt Date: 20091005
  Transmission Date: 20100525
  Serious: Yes (Other)
  Sender: FDA-Public Use
  Company Number: VAL_00321_2009

PATIENT
  Sex: Male

DRUGS (2)
  1. CALCITRIOL [Suspect]
     Indication: PROSTATE CANCER RECURRENT
     Dosage: 45 UG 1X/WEEK ORAL
     Route: 048
  2. NAPROXEN [Suspect]
     Indication: PROSTATE CANCER
     Dosage: 375 MG BID

REACTIONS (1)
  - ABDOMINAL PAIN [None]
